FAERS Safety Report 7586696-4 (Version None)
Quarter: 2011Q3

REPORT INFORMATION
  Report Type: 
  Country: None (occurrence: None)
  Receive Date: 20110701
  Receipt Date: 20110623
  Transmission Date: 20111222
  Serious: Yes (Hospitalization, Other)
  Sender: FDA-Public Use
  Company Number: FR-VERTEX PHARMACEUTICALS INC.-AE-2011-000208

PATIENT
  Sex: Male
  Weight: 100 kg

DRUGS (8)
  1. COPEGUS [Concomitant]
     Dates: start: 20110616
  2. METHADONE HCL [Concomitant]
     Indication: UNEVALUABLE EVENT
     Route: 048
  3. TOCO [Concomitant]
     Indication: INSULIN RESISTANCE
     Route: 048
     Dates: start: 20101104
  4. VX-950 [Suspect]
     Indication: HEPATITIS C
     Route: 048
     Dates: start: 20110221, end: 20110516
  5. PEGINTERFERON ALFA-2A [Concomitant]
     Indication: HEPATITIS C
     Route: 058
  6. COPEGUS [Concomitant]
     Indication: HEPATITIS C
     Route: 048
     Dates: start: 20110221
  7. COPEGUS [Concomitant]
     Dates: start: 20110406
  8. LAMICTAL [Concomitant]
     Indication: EPILEPSY
     Route: 048
     Dates: start: 20101104

REACTIONS (3)
  - NEUTROPENIA [None]
  - THROMBOCYTOPENIA [None]
  - ANAEMIA [None]
